FAERS Safety Report 10362742 (Version 2)
Quarter: 2014Q3

REPORT INFORMATION
  Report Type: Spontaneous
  Country: US (occurrence: US)
  Receive Date: 20140805
  Receipt Date: 20140930
  Transmission Date: 20150326
  Serious: No
  Sender: FDA-Public Use
  Company Number: US-PFIZER INC-2014213510

PATIENT
  Age: 44 Year
  Sex: Male

DRUGS (4)
  1. SUTENT [Suspect]
     Active Substance: SUNITINIB MALATE
     Indication: GASTROINTESTINAL STROMAL TUMOUR
     Dosage: 50 MG, CYCLIC (28 DAYS ON AND 14 DAYS OFF)
     Dates: start: 20140727
  2. TUMS [Concomitant]
     Active Substance: CALCIUM CARBONATE
     Indication: ANTIEMETIC SUPPORTIVE CARE
     Dosage: UNK
  3. GLEEVEC [Concomitant]
     Active Substance: IMATINIB MESYLATE
     Dosage: 400 MG, 2X/DAY
  4. OXYCODONE/APAP [Concomitant]
     Active Substance: ACETAMINOPHEN\OXYCODONE HYDROCHLORIDE
     Dosage: UNK, [OXYCODONE 5MG: APAP 325MG]

REACTIONS (6)
  - Liver function test abnormal [Recovered/Resolved]
  - Flatulence [Unknown]
  - Fatigue [Unknown]
  - Weight increased [Unknown]
  - Oral pain [Unknown]
  - Abdominal distension [Unknown]
